FAERS Safety Report 8613327-4 (Version None)
Quarter: 2012Q3

REPORT INFORMATION
  Report Type: 
  Country: None (occurrence: None)
  Receive Date: 20120822
  Receipt Date: 20120806
  Transmission Date: 20120928
  Serious: Yes (Hospitalization, Other)
  Sender: FDA-Public Use
  Company Number: US-009507513-1202USA00035

PATIENT

DRUGS (3)
  1. FOSAMAX [Suspect]
     Indication: OSTEOPOROSIS PROPHYLAXIS
     Dosage: 10 MG, QD
     Route: 048
     Dates: start: 19960612, end: 20080301
  2. VITAMIN D [Concomitant]
     Dosage: UNK
     Dates: start: 19960101, end: 20100101
  3. CALCIUM (UNSPECIFIED) [Concomitant]
     Dosage: UNK
     Dates: start: 19960101, end: 20100101

REACTIONS (5)
  - ARTHRITIS [None]
  - RENAL MASS [None]
  - TOOTH EXTRACTION [None]
  - TOOTH DISORDER [None]
  - FEMUR FRACTURE [None]
